FAERS Safety Report 12268461 (Version 1)
Quarter: 2016Q2

REPORT INFORMATION
  Report Type: Report from Study
  Country: US (occurrence: US)
  Receive Date: 20160414
  Receipt Date: 20160414
  Transmission Date: 20160815
  Serious: Yes (Hospitalization)
  Sender: FDA-Public Use
  Company Number: US-ACTELION-A-NJ2016-134220

PATIENT
  Age: 67 Year
  Sex: Male

DRUGS (10)
  1. SILDENAFIL. [Concomitant]
     Active Substance: SILDENAFIL
     Dosage: UNK
     Dates: end: 20160401
  2. FUROSEMIDE. [Concomitant]
     Active Substance: FUROSEMIDE
     Dosage: UNK
  3. SIMVASTATIN. [Concomitant]
     Active Substance: SIMVASTATIN
     Dosage: UNK
  4. POTASSIUM [Concomitant]
     Active Substance: POTASSIUM
     Dosage: UNK
  5. AMLODIPINE [Concomitant]
     Active Substance: AMLODIPINE BESYLATE
     Dosage: UNK
  6. DIGOXIN. [Concomitant]
     Active Substance: DIGOXIN
     Dosage: UNK
  7. TREPROSTINIL DIOLAMIN [Concomitant]
     Active Substance: TREPROSTINIL DIOLAMINE
     Dosage: UNK
     Dates: end: 20160401
  8. WARFARIN [Concomitant]
     Active Substance: WARFARIN
     Dosage: UNK
  9. CARVEDILOL. [Concomitant]
     Active Substance: CARVEDILOL
     Dosage: UNK
  10. MACITENTAN [Suspect]
     Active Substance: MACITENTAN
     Indication: PULMONARY ARTERIAL HYPERTENSION
     Dosage: 10 MG, QD
     Route: 048
     Dates: start: 20131223, end: 20160401

REACTIONS (1)
  - Pneumonia [Unknown]

NARRATIVE: CASE EVENT DATE: 20160401
